FAERS Safety Report 5852311-0 (Version None)
Quarter: 2008Q3

REPORT INFORMATION
  Report Type: 
  Country: None (occurrence: None)
  Receive Date: 20080819
  Receipt Date: 20080807
  Transmission Date: 20090109
  Serious: Yes (Death, Life-Threatening, Hospitalization, Other)
  Sender: FDA-Public Use
  Company Number: 51367

PATIENT
  Age: 3 Year
  Sex: Male

DRUGS (1)
  1. METHOTREXATE [Suspect]
     Indication: ACUTE LYMPHOCYTIC LEUKAEMIA
     Dosage: 20 MG/M2 (ORAL( AND IV INTHRATHECAL MTX X1
     Route: 037

REACTIONS (16)
  - ADENOVIRAL HEPATITIS [None]
  - BRAIN HYPOXIA [None]
  - COAGULOPATHY [None]
  - CONVULSION [None]
  - COUGH [None]
  - EPISTAXIS [None]
  - FEBRILE NEUTROPENIA [None]
  - GASTROINTESTINAL HAEMORRHAGE [None]
  - HAEMORRHAGE INTRACRANIAL [None]
  - LYMPHOCYTE COUNT DECREASED [None]
  - MULTI-ORGAN FAILURE [None]
  - PERITONEAL HAEMORRHAGE [None]
  - PHARYNGEAL HAEMORRHAGE [None]
  - PULMONARY HAEMORRHAGE [None]
  - RHINITIS [None]
  - WHITE BLOOD CELL COUNT DECREASED [None]
